FAERS Safety Report 25807052 (Version 1)
Quarter: 2025Q3

REPORT INFORMATION
  Report Type: Spontaneous
  Country: US (occurrence: US)
  Receive Date: 20250916
  Receipt Date: 20250916
  Transmission Date: 20251021
  Serious: Yes (Hospitalization)
  Sender: Phathom Pharmaceuticals
  Company Number: US-PHATHOM PHARMACEUTICALS INC.-2025PHT02544

PATIENT
  Sex: Male
  Weight: 86.1 kg

DRUGS (6)
  1. VOQUEZNA [Suspect]
     Active Substance: VONOPRAZAN FUMARATE
     Indication: Oesophageal ulcer
     Dosage: 20 MG, 1X/DAY
     Route: 048
     Dates: start: 20250423, end: 20250908
  2. VALSARTAN [Concomitant]
     Active Substance: VALSARTAN
  3. DONEPEZIL [Concomitant]
     Active Substance: DONEPEZIL
  4. PRAVASTATIN [Concomitant]
     Active Substance: PRAVASTATIN
  5. HYDROCHLOROTHIAZIDE [Concomitant]
     Active Substance: HYDROCHLOROTHIAZIDE
  6. METOPROLOL SUCCINATE [Concomitant]
     Active Substance: METOPROLOL SUCCINATE

REACTIONS (1)
  - Hospitalisation [Not Recovered/Not Resolved]

NARRATIVE: CASE EVENT DATE: 20250101
